FAERS Safety Report 9612969 (Version 2)
Quarter: 2013Q4

REPORT INFORMATION
  Report Type: Report from Study
  Country: US (occurrence: US)
  Receive Date: 20131010
  Receipt Date: 20131016
  Transmission Date: 20140711
  Serious: Yes (Hospitalization)
  Sender: FDA-Public Use
  Company Number: US-ACTELION-A-NJ2013-89673

PATIENT
  Age: 70 Year
  Sex: Female

DRUGS (3)
  1. VENTAVIS [Suspect]
     Indication: PULMONARY ARTERIAL HYPERTENSION
     Dosage: 5 MCG, UNK
     Route: 055
     Dates: end: 201310
  2. ADCIRCA [Concomitant]
  3. CIPRO [Concomitant]

REACTIONS (8)
  - Vision blurred [Recovering/Resolving]
  - Renal failure [Recovering/Resolving]
  - Blood creatinine increased [Recovering/Resolving]
  - Vomiting [Recovering/Resolving]
  - Diarrhoea [Recovering/Resolving]
  - Hypotension [Recovering/Resolving]
  - Pulmonary arterial hypertension [Recovering/Resolving]
  - Condition aggravated [Recovering/Resolving]
